FAERS Safety Report 19369535 (Version 1)
Quarter: 2021Q2

REPORT INFORMATION
  Report Type: Spontaneous
  Country: US (occurrence: US)
  Receive Date: 20210602
  Receipt Date: 20210602
  Transmission Date: 20210717
  Serious: No
  Sender: FDA-Public Use
  Company Number: US-ROCHE-2775228

PATIENT
  Sex: Female
  Weight: 56.75 kg

DRUGS (2)
  1. ZINBRYTA [Concomitant]
     Active Substance: DACLIZUMAB
  2. OCREVUS [Suspect]
     Active Substance: OCRELIZUMAB
     Indication: RELAPSING-REMITTING MULTIPLE SCLEROSIS
     Dosage: ONGOING?YES
     Route: 042
     Dates: start: 201806

REACTIONS (3)
  - Blood urine present [Not Recovered/Not Resolved]
  - Pain [Not Recovered/Not Resolved]
  - Bladder neoplasm [Not Recovered/Not Resolved]
